FAERS Safety Report 8516756-2 (Version None)
Quarter: 2012Q2

REPORT INFORMATION
  Report Type: 
  Country: None (occurrence: None)
  Receive Date: 20120406
  Receipt Date: 20091028
  Transmission Date: 20120825
  Serious: Yes (Hospitalization, Other)
  Sender: FDA-Public Use
  Company Number: PHEH2009US10598

PATIENT
  Sex: Female

DRUGS (5)
  1. TASIGNA [Suspect]
     Indication: CHRONIC MYELOID LEUKAEMIA
     Dosage: 400 MG, BID, ORAL ; 200 MG, BID, ORAL ; 200 MG, QD ; 200 MG, BID, ORAL ; 200 MG, QD, ORAL
     Route: 048
     Dates: start: 20090504, end: 20090508
  2. TASIGNA [Suspect]
     Indication: CHRONIC MYELOID LEUKAEMIA
     Dosage: 400 MG, BID, ORAL ; 200 MG, BID, ORAL ; 200 MG, QD ; 200 MG, BID, ORAL ; 200 MG, QD, ORAL
     Route: 048
     Dates: start: 20090304, end: 20090406
  3. TASIGNA [Suspect]
     Indication: CHRONIC MYELOID LEUKAEMIA
     Dosage: 400 MG, BID, ORAL ; 200 MG, BID, ORAL ; 200 MG, QD ; 200 MG, BID, ORAL ; 200 MG, QD, ORAL
     Route: 048
     Dates: start: 20090613, end: 20090629
  4. TASIGNA [Suspect]
     Indication: CHRONIC MYELOID LEUKAEMIA
     Dosage: 400 MG, BID, ORAL ; 200 MG, BID, ORAL ; 200 MG, QD ; 200 MG, BID, ORAL ; 200 MG, QD, ORAL
     Route: 048
     Dates: start: 20090818, end: 20090908
  5. TASIGNA [Suspect]
     Indication: CHRONIC MYELOID LEUKAEMIA
     Dosage: 400 MG, BID, ORAL ; 200 MG, BID, ORAL ; 200 MG, QD ; 200 MG, BID, ORAL ; 200 MG, QD, ORAL
     Route: 048
     Dates: start: 20090427, end: 20090504

REACTIONS (9)
  - PNEUMONIA [None]
  - CHRONIC MYELOID LEUKAEMIA [None]
  - NEUTROPHIL COUNT DECREASED [None]
  - LYMPHOPENIA [None]
  - HAEMOGLOBIN DECREASED [None]
  - HEADACHE [None]
  - PLATELET COUNT DECREASED [None]
  - BONE MARROW DISORDER [None]
  - ATRIAL NATRIURETIC PEPTIDE DECREASED [None]
